FAERS Safety Report 9516659 (Version 2)
Quarter: 2014Q1

REPORT INFORMATION
  Report Type: Spontaneous
  Country: US (occurrence: None)
  Receive Date: 20130305
  Receipt Date: 20140306
  Transmission Date: 20141002
  Serious: Yes (Hospitalization, Disabling, Other)
  Sender: FDA-Public Use
  Company Number: 163-21880-12120368

PATIENT
  Age: 72 Year
  Sex: Male

DRUGS (2)
  1. REVLIMID (LENALIDOMIDE) (15 MILLIGRAM, CAPSULES) [Suspect]
     Indication: PLASMA CELL MYELOMA
     Dosage: 15 MG, 1 IN 1 D, PO
     Route: 048
     Dates: start: 20121107
  2. VELCADE(BORTEZOMIB)(UNKNOWN) [Concomitant]

REACTIONS (6)
  - Thrombosis [None]
  - Renal impairment [None]
  - Plasmacytoma [None]
  - Abasia [None]
  - Bone pain [None]
  - Anaemia [None]
